FAERS Safety Report 4288496-X (Version None)
Quarter: 2004Q1

REPORT INFORMATION
  Report Type: 
  Country: None (occurrence: None)
  Receive Date: 20040205
  Receipt Date: 20040116
  Transmission Date: 20041129
  Serious: Yes (Hospitalization)
  Sender: FDA-Public Use
  Company Number: US_0401100007

PATIENT
  Age: 42 Year
  Sex: Female
  Weight: 55 kg

DRUGS (13)
  1. HUMATROPE [Suspect]
     Indication: BLOOD GROWTH HORMONE DECREASED
     Dosage: 1 MG/1DAY
     Dates: start: 19991207
  2. SYNTHROID [Concomitant]
  3. GLUCOPHAGE [Concomitant]
  4. AMBIEN [Concomitant]
  5. DOSTINEX (CARBEGOLIDE) [Concomitant]
  6. AVALIDE [Concomitant]
  7. DIAZIDE (GLICLAZIDE) [Concomitant]
  8. CYTOMEL (LIOTHYROXINE SODIUM) [Concomitant]
  9. TRICOR [Concomitant]
  10. ZELNORM (ZELNORM) [Concomitant]
  11. ZYRTEC-D 12 HOUR [Concomitant]
  12. VIOXX [Concomitant]
  13. CARBIDOPA [Concomitant]

REACTIONS (1)
  - PAPILLARY THYROID CANCER [None]
